FAERS Safety Report 25424209 (Version 1)
Quarter: 2025Q2

REPORT INFORMATION
  Report Type: Spontaneous
  Country: BF (occurrence: BF)
  Receive Date: 20250611
  Receipt Date: 20250611
  Transmission Date: 20250717
  Serious: Yes (Hospitalization, Other)
  Sender: STRIDES
  Company Number: BF-STRIDES ARCOLAB LIMITED-2025SP007126

PATIENT
  Age: 75 Year
  Sex: Female

DRUGS (3)
  1. HALOPERIDOL [Suspect]
     Active Substance: HALOPERIDOL
     Indication: Depression
     Route: 065
  2. PROMETHAZINE HYDROCHLORIDE [Suspect]
     Active Substance: PROMETHAZINE HYDROCHLORIDE
     Indication: Depression
     Route: 065
  3. AMLODIPINE\PERINDOPRIL [Concomitant]
     Active Substance: AMLODIPINE\PERINDOPRIL
     Indication: Hypertension
     Route: 065

REACTIONS (6)
  - Hyperthyroidism [Recovered/Resolved]
  - Cardiac disorder [Recovered/Resolved]
  - Symptom masked [Recovered/Resolved]
  - Cardiac failure [Recovered/Resolved]
  - Neuroleptic malignant syndrome [Recovered/Resolved]
  - Off label use [Unknown]
